FAERS Safety Report 7957412-9 (Version None)
Quarter: 2011Q4

REPORT INFORMATION
  Report Type: 
  Country: None (occurrence: None)
  Receive Date: 20111205
  Receipt Date: 20111128
  Transmission Date: 20120403
  Serious: Yes (Other)
  Sender: FDA-Public Use
  Company Number: US-B.I. PHARMACEUTICALS,INC./RIDGEFIELD-2011-BP-26888BP

PATIENT
  Sex: Male

DRUGS (16)
  1. PRADAXA [Suspect]
     Indication: ATRIAL FIBRILLATION
     Dosage: 300 MG
     Route: 048
     Dates: start: 20101101
  2. INDAPAMIDE [Concomitant]
     Indication: HYPERTENSION
  3. DIGOXIN [Concomitant]
     Indication: ATRIAL FIBRILLATION
  4. AMLODIPINE [Concomitant]
     Indication: HYPERTENSION
  5. COREG [Concomitant]
     Indication: HYPERTENSION
  6. NIASPAN [Concomitant]
     Indication: BLOOD CHOLESTEROL INCREASED
  7. LOVAZA [Concomitant]
     Indication: PROPHYLAXIS
  8. OMEPRAZOLE [Concomitant]
     Indication: GASTROOESOPHAGEAL REFLUX DISEASE
  9. L-CARNITINE [Concomitant]
     Indication: SUPPLEMENTATION THERAPY
  10. POTASSIUM ACETATE [Concomitant]
     Indication: BLOOD POTASSIUM DECREASED
  11. RAMIPRIL [Concomitant]
     Indication: HYPERTENSION
  12. CRESTOR [Concomitant]
     Indication: BLOOD CHOLESTEROL INCREASED
  13. MULTI-VITAMIN [Concomitant]
     Indication: SUPPLEMENTATION THERAPY
  14. ASPIRIN [Concomitant]
     Indication: PROPHYLAXIS
     Dosage: 81 MG
  15. VITAMIN D [Concomitant]
     Indication: SUPPLEMENTATION THERAPY
  16. COQ10 [Concomitant]
     Indication: SUPPLEMENTATION THERAPY

REACTIONS (1)
  - OESOPHAGEAL CARCINOMA [None]
